FAERS Safety Report 22905429 (Version 3)
Quarter: 2023Q4

REPORT INFORMATION
  Report Type: Spontaneous
  Country: JP (occurrence: JP)
  Receive Date: 20230905
  Receipt Date: 20231030
  Transmission Date: 20240110
  Serious: Yes (Other)
  Sender: FDA-Public Use
  Company Number: JP-LEO Pharma-362223

PATIENT
  Age: 73 Year
  Sex: Male

DRUGS (5)
  1. TACLONEX [Suspect]
     Active Substance: BETAMETHASONE DIPROPIONATE\CALCIPOTRIENE\CALCIPOTRIENE HYDRATE
     Indication: Pustular psoriasis
     Route: 003
     Dates: end: 20221215
  2. PREDNISOLONE [Concomitant]
     Active Substance: PREDNISOLONE
     Indication: Pustular psoriasis
     Route: 048
  3. APREMILAST [Concomitant]
     Active Substance: APREMILAST
     Indication: Pustular psoriasis
     Route: 048
  4. ETRETINATE [Concomitant]
     Active Substance: ETRETINATE
     Indication: Pustular psoriasis
     Route: 048
  5. ADALIMUMAB [Concomitant]
     Active Substance: ADALIMUMAB\ISOPROPYL ALCOHOL
     Indication: Pustular psoriasis

REACTIONS (5)
  - Prostatic specific antigen increased [Recovered/Resolved]
  - Product use in unapproved indication [Unknown]
  - Psoriasis [Unknown]
  - Prostate cancer [Recovering/Resolving]
  - Rash erythematous [Recovering/Resolving]

NARRATIVE: CASE EVENT DATE: 20221001
